FAERS Safety Report 23173431 (Version 1)
Quarter: 2023Q4

REPORT INFORMATION
  Report Type: Report from Study
  Country: DE (occurrence: DE)
  Receive Date: 20231111
  Receipt Date: 20231111
  Transmission Date: 20240110
  Serious: Yes (Death)
  Sender: FDA-Public Use
  Company Number: DE-ABBVIE-5490882

PATIENT
  Sex: Male

DRUGS (2)
  1. CARBIDOPA\LEVODOPA [Suspect]
     Active Substance: CARBIDOPA\LEVODOPA
     Indication: Parkinson^s disease
     Dosage: MORNING DOSE: 13.0ML; CONTINUOUS RATE DAY: 5.0ML/H ?EXTRA DOSES: 3.0ML NO ANTIBIOTICS ADMINISTERED
     Route: 050
     Dates: start: 20170213
  2. CARBIDOPA\LEVODOPA [Suspect]
     Active Substance: CARBIDOPA\LEVODOPA

REACTIONS (6)
  - Organ failure [Fatal]
  - Surgery [Fatal]
  - Asthenia [Fatal]
  - Sepsis [Fatal]
  - Intestinal obstruction [Fatal]
  - Pneumonia [Fatal]
